FAERS Safety Report 9729950 (Version 1)
Quarter: 2013Q4

REPORT INFORMATION
  Report Type: Spontaneous
  Country: FI (occurrence: None)
  Receive Date: 20131203
  Receipt Date: 20131203
  Transmission Date: 20140711
  Serious: Yes (Life-Threatening, Hospitalization)
  Sender: FDA-Public Use
  Company Number: 2013P1021349

PATIENT
  Age: 80 Year
  Sex: Female

DRUGS (3)
  1. DIAZEPAM [Suspect]
     Dates: start: 20090314, end: 20090314
  2. CHLORDIAZEPOXIDE [Suspect]
     Dates: start: 20090314, end: 20090314
  3. OXAZEPAM [Suspect]
     Dates: start: 20090314, end: 20090314

REACTIONS (3)
  - Poisoning deliberate [None]
  - Disorientation [None]
  - Loss of consciousness [None]
